FAERS Safety Report 16071127 (Version 2)
Quarter: 2019Q2

REPORT INFORMATION
  Report Type: Spontaneous
  Country: US (occurrence: US)
  Receive Date: 20190314
  Receipt Date: 20190412
  Transmission Date: 20190711
  Serious: No
  Sender: FDA-Public Use
  Company Number: US-PFIZER INC-2019105471

PATIENT
  Age: 53 Year
  Sex: Female

DRUGS (6)
  1. PROZAC [Suspect]
     Active Substance: FLUOXETINE HYDROCHLORIDE
     Dosage: UNK
  2. TRULICITY [Suspect]
     Active Substance: DULAGLUTIDE
     Dosage: UNK
  3. LYRICA [Suspect]
     Active Substance: PREGABALIN
     Dosage: 150 MG, 3X/DAY
  4. MELOXICAM. [Suspect]
     Active Substance: MELOXICAM
     Dosage: UNK
  5. TRAMADOL HCL [Suspect]
     Active Substance: TRAMADOL HYDROCHLORIDE
     Dosage: UNK
  6. TRESIBA [Suspect]
     Active Substance: INSULIN DEGLUDEC
     Dosage: UNK

REACTIONS (1)
  - Drug hypersensitivity [Unknown]
